FAERS Safety Report 8984511 (Version 1)
Quarter: 2012Q4

REPORT INFORMATION
  Report Type: 
  Country: BR (occurrence: BR)
  Receive Date: 20121226
  Receipt Date: 20121226
  Transmission Date: 20130627
  Serious: Yes (Other)
  Sender: FDA-Public Use
  Company Number: BR-JNJFOC-20121207748

PATIENT
  Age: 37 Year
  Sex: Female
  Weight: 81 kg

DRUGS (10)
  1. REMICADE [Suspect]
     Indication: ANKYLOSING SPONDYLITIS
     Route: 042
     Dates: start: 20120905
  2. REMICADE [Suspect]
     Indication: ANKYLOSING SPONDYLITIS
     Route: 042
     Dates: start: 20120927
  3. REMICADE [Suspect]
     Indication: ANKYLOSING SPONDYLITIS
     Route: 042
     Dates: start: 20121026, end: 20121026
  4. CIPROFLOXACIN [Concomitant]
     Route: 048
  5. SULFASALAZINE [Concomitant]
     Indication: ANKYLOSING SPONDYLITIS
     Route: 048
  6. CELECOXIB [Concomitant]
     Route: 048
  7. SIMVASTATINE [Concomitant]
     Route: 048
  8. OMEPRAZOLE [Concomitant]
     Route: 048
  9. VITAMIN D3 [Concomitant]
     Dosage: 200 IU 4 drop
     Route: 048
  10. CYCLOBENZAPRINE [Concomitant]
     Route: 048

REACTIONS (10)
  - Rash [Recovered/Resolved]
  - Dyspnoea [Recovered/Resolved]
  - Conjunctival hyperaemia [Recovered/Resolved]
  - Tachypnoea [Recovered/Resolved]
  - Infusion related reaction [Recovered/Resolved]
  - Malaise [Recovered/Resolved]
  - Feeling hot [Recovered/Resolved]
  - Nausea [Recovered/Resolved]
  - Back pain [Recovered/Resolved]
  - Chest pain [Recovered/Resolved]
